FAERS Safety Report 9157229 (Version 1)
Quarter: 2013Q1

REPORT INFORMATION
  Report Type: Spontaneous
  Country: US (occurrence: US)
  Receive Date: 20130312
  Receipt Date: 20130312
  Transmission Date: 20140127
  Serious: No
  Sender: FDA-Public Use
  Company Number: US-PFIZER INC-2013082046

PATIENT
  Age: 45 Year
  Sex: Female
  Weight: 52.15 kg

DRUGS (3)
  1. CELEBREX [Suspect]
     Indication: PAIN
     Dosage: 200 MG, 2X/DAY
     Route: 048
     Dates: start: 20130212, end: 20130221
  2. CELEBREX [Suspect]
     Dosage: 200 MG, 1X/DAY
     Route: 048
     Dates: start: 20130305, end: 201303
  3. NORCO [Concomitant]
     Indication: PAIN
     Dosage: 7.5/325 MG, AS NEEDED
     Route: 048
     Dates: start: 20130206

REACTIONS (2)
  - Blister [Recovered/Resolved]
  - Rash [Recovered/Resolved]
